FAERS Safety Report 10747908 (Version 1)
Quarter: 2015Q1

REPORT INFORMATION
  Report Type: Spontaneous
  Country: US (occurrence: GB)
  Receive Date: 20150129
  Receipt Date: 20150129
  Transmission Date: 20150721
  Serious: Yes (Disabling, Other)
  Sender: FDA-Public Use
  Company Number: US-BAYER-2015-013062

PATIENT
  Age: 27 Year
  Sex: Female

DRUGS (2)
  1. CERAZETTE [Suspect]
     Active Substance: DESOGESTREL
     Dosage: 1 DF, QD
     Route: 048
     Dates: start: 20100916, end: 20100920
  2. YASMIN ED, FILM-COATED TABLETS, 0.03 MG/3 MG [Suspect]
     Active Substance: DROSPIRENONE\ETHINYL ESTRADIOL
     Indication: CONTRACEPTION
     Dosage: UNK
     Route: 048
     Dates: end: 20100915

REACTIONS (2)
  - Back pain [Recovering/Resolving]
  - Abdominal pain lower [Recovering/Resolving]

NARRATIVE: CASE EVENT DATE: 20100917
